FAERS Safety Report 18590917 (Version 1)
Quarter: 2020Q4

REPORT INFORMATION
  Report Type: Spontaneous
  Country: US (occurrence: US)
  Receive Date: 20201208
  Receipt Date: 20201208
  Transmission Date: 20210114
  Serious: Yes (Other)
  Sender: FDA-Public Use
  Company Number: US-PFIZER INC-2017462989

PATIENT
  Age: 61 Year
  Sex: Female
  Weight: 95 kg

DRUGS (4)
  1. LYRICA [Suspect]
     Active Substance: PREGABALIN
     Indication: DIABETES MELLITUS
     Dosage: 100 MG, 2X/DAY [TWICE A DAY ONE IN THE MORNING AND ONE IN THE EVENING BY MOUTH]
     Route: 048
     Dates: start: 20190502, end: 20201023
  2. LYRICA [Suspect]
     Active Substance: PREGABALIN
     Indication: SPONDYLOLISTHESIS
  3. LYRICA [Suspect]
     Active Substance: PREGABALIN
     Indication: BACK PAIN
     Dosage: 75 MG, 2X/DAY
     Route: 048
     Dates: start: 20171019, end: 20180117
  4. LYRICA [Suspect]
     Active Substance: PREGABALIN
     Indication: BACK PAIN
     Dosage: 200 MG, 2X/DAY
     Dates: start: 2020

REACTIONS (3)
  - Myocardial infarction [Unknown]
  - Mobility decreased [Recovering/Resolving]
  - Cerebrovascular accident [Recovering/Resolving]

NARRATIVE: CASE EVENT DATE: 2020
